FAERS Safety Report 25075333 (Version 2)
Quarter: 2025Q1

REPORT INFORMATION
  Report Type: Spontaneous
  Country: US (occurrence: US)
  Receive Date: 20250313
  Receipt Date: 20250327
  Transmission Date: 20250409
  Serious: No
  Sender: PFIZER
  Company Number: US-PFIZER INC-202500003795

PATIENT
  Age: 1 Year
  Sex: Female

DRUGS (2)
  1. GENOTROPIN [Suspect]
     Active Substance: SOMATROPIN
     Indication: Hypopituitarism
     Dosage: ALTERNATES 0.2 MG AND 0.3 MG EVERY OTHER DAY
     Dates: start: 202502
  2. GENOTROPIN [Suspect]
     Active Substance: SOMATROPIN
     Indication: Growth hormone deficiency
     Dosage: ALTERNATES 0.2 MG AND 0.3 MG EVERY OTHER DAY
     Dates: start: 202502

REACTIONS (6)
  - Device use error [Unknown]
  - Device breakage [Unknown]
  - Product physical issue [Unknown]
  - Device leakage [Unknown]
  - Incorrect dose administered by device [Unknown]
  - Drug dose omission by device [Unknown]

NARRATIVE: CASE EVENT DATE: 20250306
